FAERS Safety Report 5962441-0 (Version None)
Quarter: 2008Q4

REPORT INFORMATION
  Report Type: 
  Country: None (occurrence: None)
  Receive Date: 20081121
  Receipt Date: 20081114
  Transmission Date: 20090506
  Serious: Yes (Other)
  Sender: FDA-Public Use
  Company Number: US-PFIZER INC-2007102044

PATIENT
  Sex: Female
  Weight: 70.909 kg

DRUGS (13)
  1. CHANTIX [Suspect]
     Indication: SMOKING CESSATION THERAPY
     Route: 048
     Dates: start: 20070101, end: 20071120
  2. LEXAPRO [Concomitant]
  3. VICODIN [Concomitant]
     Indication: INTERVERTEBRAL DISC PROTRUSION
     Dosage: TEXT:TWO OR THREE TABLETS DAILY
  4. IBUPROFEN TABLETS [Concomitant]
  5. MINOCIN [Concomitant]
     Indication: SKIN DISORDER
     Dosage: DAILY DOSE:100MG
  6. NEXIUM [Concomitant]
     Indication: ABDOMINAL DISCOMFORT
  7. VITAMINS [Concomitant]
  8. CORAL CALCIUM [Concomitant]
     Dosage: DAILY DOSE:1000MG
  9. ZINC [Concomitant]
  10. POTASSIUM CHLORIDE [Concomitant]
     Dosage: DAILY DOSE:99MG
  11. ALL OTHER THERAPEUTIC PRODUCTS [Concomitant]
  12. MILK THISTLE [Concomitant]
  13. ASCORBIC ACID [Concomitant]
     Dosage: DAILY DOSE:1000MG-TEXT:DAILY

REACTIONS (15)
  - ABDOMINAL PAIN UPPER [None]
  - ABNORMAL DREAMS [None]
  - ABNORMAL FAECES [None]
  - DYSPEPSIA [None]
  - HYPERPHAGIA [None]
  - HYPERSENSITIVITY [None]
  - INJECTION SITE HAEMORRHAGE [None]
  - INJECTION SITE JOINT REDNESS [None]
  - INJECTION SITE OEDEMA [None]
  - INJECTION SITE PAIN [None]
  - INJECTION SITE THROMBOSIS [None]
  - INSOMNIA [None]
  - NAUSEA [None]
  - POLYDIPSIA [None]
  - VOMITING [None]
